FAERS Safety Report 16348085 (Version 1)
Quarter: 2019Q2

REPORT INFORMATION
  Report Type: Spontaneous
  Country: US (occurrence: US)
  Receive Date: 20190523
  Receipt Date: 20190523
  Transmission Date: 20190711
  Serious: No
  Sender: FDA-Public Use
  Company Number: US-IGSA-SR10007872

PATIENT
  Age: 27 Year
  Sex: Male

DRUGS (6)
  1. GAMUNEX-C [Suspect]
     Active Substance: HUMAN IMMUNOGLOBULIN G
     Indication: DERMATOMYOSITIS
     Dosage: 60 G, UNK
     Route: 042
     Dates: start: 20190124, end: 20190124
  2. GAMUNEX-C [Suspect]
     Active Substance: HUMAN IMMUNOGLOBULIN G
     Dosage: 10 G, UNK
     Route: 042
     Dates: start: 20190124, end: 20190124
  3. PREDNISOLONE                       /00016202/ [Concomitant]
     Active Substance: PREDNISOLONE
     Indication: PREMEDICATION
     Dosage: UNK UNK, SINGLE
     Dates: start: 20190125, end: 20190125
  4. GAMUNEX-C [Suspect]
     Active Substance: HUMAN IMMUNOGLOBULIN G
     Dosage: 60 G, UNK
     Route: 042
     Dates: start: 20190125, end: 20190125
  5. BENADRYL [Concomitant]
     Active Substance: DIPHENHYDRAMINE HYDROCHLORIDE
     Indication: PREMEDICATION
     Dosage: 50 MG, SINGLE
     Route: 048
     Dates: start: 20190125, end: 20190125
  6. TYLENOL [Concomitant]
     Active Substance: ACETAMINOPHEN
     Indication: PREMEDICATION
     Dosage: 650 MG, SINGLE
     Route: 048
     Dates: start: 20190125, end: 20190125

REACTIONS (3)
  - Rash [Recovered/Resolved]
  - Urticaria [Recovered/Resolved]
  - Pruritus [Recovered/Resolved]

NARRATIVE: CASE EVENT DATE: 20190124
